FAERS Safety Report 13072542 (Version 2)
Quarter: 2018Q1

REPORT INFORMATION
  Report Type: Spontaneous
  Country: US (occurrence: US)
  Receive Date: 20161229
  Receipt Date: 20180115
  Transmission Date: 20180508
  Serious: Yes (Other)
  Sender: FDA-Public Use
  Company Number: US-SA-2016SA136169

PATIENT
  Age: 61 Year
  Sex: Female
  Weight: 58.9 kg

DRUGS (6)
  1. TAXOTERE [Suspect]
     Active Substance: DOCETAXEL
     Indication: BREAST CANCER STAGE II
     Dosage: SIX CYCLES OF CHEMOTHERAPY
     Route: 051
     Dates: start: 20110117, end: 20110117
  2. TAXOTERE [Suspect]
     Active Substance: DOCETAXEL
     Indication: BREAST CANCER STAGE II
     Dosage: SIX CYCLES OF CHEMOTHERAPY
     Route: 042
     Dates: start: 20110209, end: 20110209
  3. SYNTHROID [Concomitant]
     Active Substance: LEVOTHYROXINE SODIUM
     Route: 065
     Dates: start: 2003
  4. TAXOTERE [Suspect]
     Active Substance: DOCETAXEL
     Indication: BREAST CANCER STAGE II
     Dosage: SIX CYCLES OF CHEMOTHERAPY
     Route: 051
     Dates: start: 20110502, end: 20110502
  5. PARAPLATIN [Concomitant]
     Active Substance: CARBOPLATIN
  6. WELLBUTRIN [Concomitant]
     Active Substance: BUPROPION HYDROCHLORIDE
     Route: 065
     Dates: start: 2003

REACTIONS (2)
  - Psychological trauma [Unknown]
  - Alopecia [Not Recovered/Not Resolved]

NARRATIVE: CASE EVENT DATE: 20111102
